FAERS Safety Report 10836751 (Version 1)
Quarter: 2015Q1

REPORT INFORMATION
  Report Type: Report from Study
  Country: US (occurrence: US)
  Receive Date: 20150219
  Receipt Date: 20150219
  Transmission Date: 20150721
  Serious: No
  Sender: FDA-Public Use
  Company Number: US-ABBVIE-14P-163-1222148-00

PATIENT
  Age: 68 Year
  Sex: Female
  Weight: 93.07 kg

DRUGS (16)
  1. POTASSIUM CHLORIDE. [Concomitant]
     Active Substance: POTASSIUM CHLORIDE
     Indication: ELECTROLYTE SUBSTITUTION THERAPY
  2. BETIMOL [Concomitant]
     Active Substance: TIMOLOL
     Indication: SJOGREN^S SYNDROME
  3. MS CONTIN [Concomitant]
     Active Substance: MORPHINE SULFATE
     Indication: PAIN
  4. EVISTA [Concomitant]
     Active Substance: RALOXIFENE HYDROCHLORIDE
     Indication: OSTEOPENIA
  5. ASPIRIN. [Concomitant]
     Active Substance: ASPIRIN
     Indication: STICKY PLATELET SYNDROME
  6. VAGIFEM [Concomitant]
     Active Substance: ESTRADIOL
     Indication: VULVOVAGINAL DRYNESS
  7. BLOOD SERUM EYE DROPS [Concomitant]
     Indication: SJOGREN^S SYNDROME
  8. PREVACID [Concomitant]
     Active Substance: LANSOPRAZOLE
     Indication: GASTROOESOPHAGEAL REFLUX DISEASE
  9. PATADAY [Concomitant]
     Active Substance: OLOPATADINE HYDROCHLORIDE
     Indication: SJOGREN^S SYNDROME
  10. HUMIRA [Suspect]
     Active Substance: ADALIMUMAB
     Indication: RHEUMATOID ARTHRITIS
     Dates: start: 20140317
  11. COZAAR [Concomitant]
     Active Substance: LOSARTAN POTASSIUM
     Indication: HYPERTENSION
  12. VITAMIN D [Concomitant]
     Active Substance: CHOLECALCIFEROL
     Indication: OSTEOPENIA
  13. LOTEMAX [Concomitant]
     Active Substance: LOTEPREDNOL ETABONATE
     Indication: SJOGREN^S SYNDROME
     Dosage: EYE DROPS
  14. MEDROL [Concomitant]
     Active Substance: METHYLPREDNISOLONE
     Indication: INFLAMMATION
  15. PATADAY [Concomitant]
     Active Substance: OLOPATADINE HYDROCHLORIDE
     Indication: EYE ALLERGY
     Dosage: EYE DROPS
  16. MAXZIDE [Concomitant]
     Active Substance: HYDROCHLOROTHIAZIDE\TRIAMTERENE
     Indication: NEPHROPATHY

REACTIONS (7)
  - Injection site pain [Recovered/Resolved]
  - Rash erythematous [Unknown]
  - Rash [Unknown]
  - Injection site rash [Recovering/Resolving]
  - Drug administered at inappropriate site [Not Recovered/Not Resolved]
  - Rash [Recovered/Resolved]
  - Photosensitivity reaction [Not Recovered/Not Resolved]

NARRATIVE: CASE EVENT DATE: 20140329
